FAERS Safety Report 20689865 (Version 2)
Quarter: 2022Q2

REPORT INFORMATION
  Report Type: Spontaneous
  Country: US (occurrence: US)
  Receive Date: 20220408
  Receipt Date: 20220415
  Transmission Date: 20220721
  Serious: No
  Sender: FDA-Public Use
  Company Number: US-AIMMUNE THERAPEUTICS, INC.-2022AIMT00263

PATIENT

DRUGS (5)
  1. PALFORZIA [Suspect]
     Active Substance: PEANUT
     Indication: Food allergy
     Dosage: 3 MG, ONCE, FIRST AND ONLY DOSE PRIOR EVENT ONSET
     Route: 048
     Dates: start: 20220322, end: 20220322
  2. PALFORZIA [Suspect]
     Active Substance: PEANUT
     Dosage: 2 MG, 1X/DAY, DOSE DECREASED
     Route: 048
     Dates: start: 20220323, end: 20220325
  3. PALFORZIA [Suspect]
     Active Substance: PEANUT
     Dosage: 2 MG, ONCE, LAST DOSE PRIOR REFUSAL OF TREATMENT
     Route: 048
     Dates: start: 20220325, end: 20220325
  4. PALFORZIA [Suspect]
     Active Substance: PEANUT
     Dosage: 1 MG, 1X/DAY, DOSE DECREASED
     Route: 048
     Dates: start: 20220328, end: 20220404
  5. PALFORZIA [Suspect]
     Active Substance: PEANUT
     Dosage: 1 MG, ONCE, LAST DOSE PRIOR DISCOMFORT
     Route: 048
     Dates: start: 20220330, end: 20220330

REACTIONS (3)
  - Refusal of treatment by patient [Recovered/Resolved]
  - Discomfort [Recovered/Resolved]
  - Abdominal pain [Recovered/Resolved]

NARRATIVE: CASE EVENT DATE: 20220322
